FAERS Safety Report 23284597 (Version 1)
Quarter: 2023Q4

REPORT INFORMATION
  Report Type: Spontaneous
  Country: CH (occurrence: CH)
  Receive Date: 20231211
  Receipt Date: 20231211
  Transmission Date: 20240110
  Serious: Yes (Hospitalization, Other)
  Sender: FDA-Public Use
  Company Number: None

PATIENT
  Age: 79 Year
  Sex: Male

DRUGS (4)
  1. LORAZEPAM [Suspect]
     Active Substance: LORAZEPAM
     Dosage: 2.5 MG, 2X/DAY (EVERY 12 HOURS, 0-1-1)
     Route: 048
  2. AMITRIPTYLINE [Suspect]
     Active Substance: AMITRIPTYLINE
     Dosage: 200 MG, 1X/DAY (EVERY 24 HOURS, 150 MG - 0 - 50MG)
     Route: 048
     Dates: end: 20231108
  3. LISINOPRIL [Suspect]
     Active Substance: LISINOPRIL
     Dosage: 20 MG, 1X/DAY (EVERY 24 HOURS, 1-0-0)
     Route: 048
     Dates: end: 20231108
  4. SERTRALINE [Concomitant]
     Active Substance: SERTRALINE HYDROCHLORIDE
     Dosage: 150 MG, 1X/DAY (EVERY 24 HOURS, 150 MG - 0 - 50MG, 3-0-0)
     Route: 048

REACTIONS (2)
  - Agranulocytosis [Recovering/Resolving]
  - Febrile neutropenia [Recovering/Resolving]

NARRATIVE: CASE EVENT DATE: 20231109
